FAERS Safety Report 11562001 (Version 1)
Quarter: 2015Q3

REPORT INFORMATION
  Report Type: Spontaneous
  Country: US (occurrence: US)
  Receive Date: 20150916
  Receipt Date: 20150916
  Transmission Date: 20151125
  Serious: No
  Sender: FDA-Public Use
  Company Number: US-ELI_LILLY_AND_COMPANY-US200811003717

PATIENT
  Age: 74 Year
  Sex: Female

DRUGS (2)
  1. FORTEO [Suspect]
     Active Substance: TERIPARATIDE
     Indication: OSTEOPOROSIS
     Dosage: 20 UG, EACH EVENING
     Dates: start: 20081031
  2. FORTEO [Suspect]
     Active Substance: TERIPARATIDE
     Dosage: 20 UG, DAILY (1/D)

REACTIONS (8)
  - Headache [Recovering/Resolving]
  - Nausea [Recovered/Resolved]
  - Arthritis [Not Recovered/Not Resolved]
  - Fall [Recovered/Resolved]
  - Tinnitus [Not Recovered/Not Resolved]
  - Tenderness [Recovered/Resolved]
  - Dizziness [Recovering/Resolving]
  - Balance disorder [Recovered/Resolved]

NARRATIVE: CASE EVENT DATE: 2008
